FAERS Safety Report 5513443-X (Version None)
Quarter: 2007Q4

REPORT INFORMATION
  Report Type: 
  Country: None (occurrence: None)
  Receive Date: 20071112
  Receipt Date: 20071106
  Transmission Date: 20080405
  Serious: Yes (Death, Life-Threatening, Hospitalization)
  Sender: FDA-Public Use
  Company Number: BEWYE890111SEP06

PATIENT
  Age: 65 Year
  Sex: Female
  Weight: 100 kg

DRUGS (11)
  1. TYGACIL [Suspect]
     Indication: OSTEOMYELITIS
     Route: 042
     Dates: start: 20060811, end: 20060906
  2. ATORVASTATIN CALCIUM [Concomitant]
     Indication: HYPERCHOLESTEROLAEMIA
     Route: 048
  3. ALLOPURINOL [Concomitant]
     Route: 048
  4. ALPRAZOLAM [Concomitant]
     Route: 048
  5. POTASSIUM CHLORIDE/SODIUM CHLORIDE [Concomitant]
     Dosage: 60 MG EVERY
     Route: 042
     Dates: start: 20060831
  6. FLUOXETINE HYDROCHLORIDE [Concomitant]
     Route: 048
  7. PARACETAMOL [Concomitant]
     Dosage: 1 G IF NECESSARY
     Route: 048
     Dates: start: 20060808
  8. ZOLPIDEM TARTRATE [Concomitant]
     Route: 048
  9. METOCLOPRAMIDE [Concomitant]
     Dosage: 10 MG EVERY
     Route: 042
     Dates: start: 20060902, end: 20060906
  10. FUROSEMIDE SODIUM [Concomitant]
     Route: 048
     Dates: start: 20060901
  11. OMEPRAZOLE [Concomitant]
     Route: 048
     Dates: start: 20060901

REACTIONS (4)
  - HEPATIC FAILURE [None]
  - SEPTIC SHOCK [None]
  - SHOCK HAEMORRHAGIC [None]
  - THROMBOCYTOPENIA [None]
